FAERS Safety Report 24218618 (Version 1)
Quarter: 2024Q3

REPORT INFORMATION
  Report Type: Report from Study
  Country: DE (occurrence: DE)
  Receive Date: 20240816
  Receipt Date: 20240816
  Transmission Date: 20241016
  Serious: Yes (Other)
  Sender: SANDOZ
  Company Number: DE-NOVPHSZ-PHHY2018DE104863

PATIENT
  Age: 25 Year
  Sex: Female

DRUGS (2)
  1. FILGRASTIM [Suspect]
     Active Substance: FILGRASTIM
     Dosage: 2700 UG
     Route: 065
     Dates: end: 20120524
  2. FILGRASTIM [Suspect]
     Active Substance: FILGRASTIM
     Indication: Stem cell donor
     Dosage: UNK, QD (30 MU / 0.5 ML, 2X)
     Route: 058
     Dates: start: 20120520

REACTIONS (4)
  - Gestational diabetes [Recovered/Resolved]
  - Maternal exposure before pregnancy [Recovered/Resolved]
  - Normal newborn [Unknown]
  - Delivery [Unknown]

NARRATIVE: CASE EVENT DATE: 20140101
